FAERS Safety Report 10385108 (Version 1)
Quarter: 2014Q3

REPORT INFORMATION
  Report Type: Spontaneous
  Country: BR (occurrence: BR)
  Receive Date: 20140814
  Receipt Date: 20140814
  Transmission Date: 20150326
  Serious: Yes (Other)
  Sender: FDA-Public Use
  Company Number: BR-JNJFOC-20140805553

PATIENT
  Sex: Female
  Weight: 65 kg

DRUGS (4)
  1. TYLEX [Suspect]
     Active Substance: ACETAMINOPHEN\CODEINE PHOSPHATE
     Indication: PAIN
     Route: 065
     Dates: start: 201404, end: 201404
  2. UNSPECIFED MEDICATIONS [Concomitant]
     Active Substance: UNSPECIFIED INGREDIENT
     Indication: DIABETES MELLITUS
     Route: 065
  3. TYLEX [Suspect]
     Active Substance: ACETAMINOPHEN\CODEINE PHOSPHATE
     Route: 065
  4. UNSPECIFED MEDICATIONS [Concomitant]
     Active Substance: UNSPECIFIED INGREDIENT
     Indication: HYPERTENSION
     Route: 065

REACTIONS (7)
  - Asthenia [Unknown]
  - Tremor [Unknown]
  - Nausea [Unknown]
  - Vomiting [Recovering/Resolving]
  - Swelling [Unknown]
  - Plasma cell myeloma [Unknown]
  - Pruritus [Recovered/Resolved]

NARRATIVE: CASE EVENT DATE: 2014
